FAERS Safety Report 4320296-4 (Version None)
Quarter: 2004Q1

REPORT INFORMATION
  Report Type: 
  Country: None (occurrence: None)
  Receive Date: 20040317
  Receipt Date: 20040308
  Transmission Date: 20041129
  Serious: Yes (Disabling)
  Sender: FDA-Public Use
  Company Number: 2004GB00586

PATIENT
  Age: 77 Year

DRUGS (6)
  1. CRESTOR [Suspect]
     Indication: HYPERCHOLESTEROLAEMIA
     Dosage: 40 MG PO
     Route: 048
     Dates: start: 20040209, end: 20040220
  2. SIMVASTATIN [Concomitant]
  3. BENDROFLUAZIDE [Concomitant]
  4. IRBESARTAN [Concomitant]
  5. ASPIRIN [Concomitant]
  6. ACETAMINOPHEN [Concomitant]

REACTIONS (1)
  - CONFUSIONAL STATE [None]
